FAERS Safety Report 16382756 (Version 2)
Quarter: 2019Q2

REPORT INFORMATION
  Report Type: Spontaneous
  Country: US (occurrence: US)
  Receive Date: 20190603
  Receipt Date: 20190620
  Transmission Date: 20190711
  Serious: No
  Sender: FDA-Public Use
  Company Number: US-GLAXOSMITHKLINE-US2019098671

PATIENT
  Age: 72 Year
  Sex: Female

DRUGS (2)
  1. FLONASE SENSIMIST ALLERGY RELIEF [Suspect]
     Active Substance: FLUTICASONE FUROATE
     Dosage: UNK,(I HAVE TO USE THREE SPRAYS BECAUSE IT COMES OUT SO SMALL)
  2. FLONASE SENSIMIST ALLERGY RELIEF [Suspect]
     Active Substance: FLUTICASONE FUROATE
     Indication: HYPERSENSITIVITY
     Dosage: UNK,( I HAVE TO USE THREE SPRAYS BECAUSE IT COMES OUT SO SMALL)
     Dates: start: 201904

REACTIONS (3)
  - Incorrect dose administered [Unknown]
  - Extra dose administered [Unknown]
  - Product complaint [Unknown]
